FAERS Safety Report 5530750-5 (Version None)
Quarter: 2007Q4

REPORT INFORMATION
  Report Type: 
  Country: None (occurrence: None)
  Receive Date: 20071130
  Receipt Date: 20071120
  Transmission Date: 20080405
  Serious: Yes (Hospitalization, Other)
  Sender: FDA-Public Use
  Company Number: FR-ELI_LILLY_AND_COMPANY-FR200711004956

PATIENT
  Age: 80 Year
  Sex: Female
  Weight: 68 kg

DRUGS (6)
  1. FORTEO [Suspect]
     Indication: OSTEOPOROSIS
     Dosage: 20 UG, DAILY (1/D)
     Route: 058
     Dates: start: 20070112
  2. LOGIMAX [Concomitant]
     Route: 048
  3. COKENZEN [Concomitant]
     Route: 048
  4. CORDARONE [Concomitant]
     Route: 048
  5. PLAVIX [Concomitant]
     Route: 048
  6. ZOLOFT [Concomitant]
     Route: 048

REACTIONS (2)
  - CARDIAC DISORDER [None]
  - NEOPLASM MALIGNANT [None]
